FAERS Safety Report 24683100 (Version 1)
Quarter: 2024Q4

REPORT INFORMATION
  Report Type: Spontaneous
  Country: US (occurrence: US)
  Receive Date: 20241201
  Receipt Date: 20241201
  Transmission Date: 20250115
  Serious: No
  Sender: ALEXION PHARMACEUTICALS
  Company Number: US-AstraZeneca-CH-00756349A

PATIENT

DRUGS (4)
  1. BYDUREON BCISE [Suspect]
     Active Substance: EXENATIDE
     Route: 065
  2. BYDUREON BCISE [Suspect]
     Active Substance: EXENATIDE
  3. BYDUREON BCISE [Suspect]
     Active Substance: EXENATIDE
     Route: 065
  4. BYDUREON BCISE [Suspect]
     Active Substance: EXENATIDE

REACTIONS (9)
  - Anxiety [Unknown]
  - Constipation [Unknown]
  - Weight decreased [Unknown]
  - Blood pressure measurement [Unknown]
  - Glucose tolerance impaired [Unknown]
  - Blood glucose decreased [Unknown]
  - Life support [Unknown]
  - Dyspnoea [Unknown]
  - Oxygen saturation decreased [Unknown]
